FAERS Safety Report 18581512 (Version 1)
Quarter: 2020Q4

REPORT INFORMATION
  Report Type: Spontaneous
  Country: US (occurrence: US)
  Receive Date: 20201202
  Receipt Date: 20201202
  Transmission Date: 20210114
  Serious: Yes (Hospitalization)
  Sender: FDA-Public Use
  Company Number: None

PATIENT
  Age: 71 Year
  Sex: Male
  Weight: 78 kg

DRUGS (2)
  1. ASPIRIN (ASPIRIN 325MG TAB) [Suspect]
     Active Substance: ASPIRIN
     Route: 048
     Dates: start: 20180515, end: 20180609
  2. NAPROXEN (NAPROXEN 500MG TAB) [Suspect]
     Active Substance: NAPROXEN
     Route: 048
     Dates: start: 20170908, end: 20180609

REACTIONS (2)
  - Anaemia [None]
  - Gastric haemorrhage [None]

NARRATIVE: CASE EVENT DATE: 20180608
